FAERS Safety Report 9262125 (Version 3)
Quarter: 2013Q3

REPORT INFORMATION
  Report Type: Report from Study
  Country: DE (occurrence: DE)
  Receive Date: 20130430
  Receipt Date: 20130722
  Transmission Date: 20140515
  Serious: Yes (Hospitalization)
  Sender: FDA-Public Use
  Company Number: DE-ROCHE-1218384

PATIENT
  Age: 50 Year
  Sex: Female
  Weight: 69 kg

DRUGS (6)
  1. BEVACIZUMAB [Suspect]
     Indication: OVARIAN CANCER
     Dosage: LAST DOSE PRIOR TO THE EVENT 17/APR/2013
     Route: 042
     Dates: start: 20120618
  2. CARBOPLATIN [Suspect]
     Indication: OVARIAN CANCER
     Dosage: LAST DOSE PRIOR TO THE EVENT 10/OCT/2012 AT AUC 5
     Route: 042
     Dates: start: 20120618
  3. PACLITAXEL [Suspect]
     Indication: OVARIAN CANCER
     Dosage: DOSE PRIOR TO THE EVENT 10/OCT/2012 AT 287 MG
     Route: 042
     Dates: start: 20120618
  4. ARCOXIA [Concomitant]
     Indication: ARTHRALGIA
     Route: 048
     Dates: start: 20120906
  5. RAMIPRIL [Concomitant]
     Indication: HYPERTENSION
     Route: 048
     Dates: start: 20120921
  6. BISOPROLOL [Concomitant]
     Indication: HYPERTENSION
     Route: 048
     Dates: start: 20121217

REACTIONS (1)
  - Intervertebral disc protrusion [Recovered/Resolved]
